FAERS Safety Report 9210617 (Version 1)
Quarter: 2013Q2

REPORT INFORMATION
  Report Type: Spontaneous
  Country: FR (occurrence: FR)
  Receive Date: 20130404
  Receipt Date: 20130404
  Transmission Date: 20140414
  Serious: Yes (Death, Other)
  Sender: FDA-Public Use
  Company Number: FR-VERTEX PHARMACEUTICALS INC.-2013-004468

PATIENT
  Age: 51 Year
  Sex: Male
  Weight: 82 kg

DRUGS (7)
  1. INCIVO [Suspect]
     Indication: HEPATITIS C
     Dosage: 750 MG, TID
     Route: 048
     Dates: start: 20110407, end: 20110427
  2. PEGASYS [Concomitant]
     Indication: HEPATITIS C
     Dosage: DOSAGE FORM: UNSPECIFIED
     Route: 065
     Dates: start: 20110407, end: 20110427
  3. COPEGUS [Concomitant]
     Indication: HEPATITIS C
     Dosage: DOSAGE FORM: UNSPECIFIED
     Route: 065
     Dates: start: 20110407, end: 20110427
  4. TOCO [Concomitant]
     Indication: INSULIN RESISTANCE
     Dosage: DOSAGE FORM: UNSPECIFIED
     Route: 065
     Dates: start: 20110131
  5. ALDACTONE [Concomitant]
     Indication: PROPHYLAXIS
     Dosage: DOSAGE FORM: UNSPECIFIED
     Route: 065
     Dates: start: 20090417
  6. AVLOCARDYL [Concomitant]
     Indication: VARICES OESOPHAGEAL
     Dosage: UNK, QD
     Route: 065
     Dates: start: 20111124
  7. NOROXINE [Concomitant]
     Dosage: DOSAGE FORM: UNSPECIFIED
     Route: 065

REACTIONS (3)
  - Septic shock [Fatal]
  - Multi-organ failure [Fatal]
  - Peritonitis [Unknown]
